FAERS Safety Report 15623435 (Version 4)
Quarter: 2019Q1

REPORT INFORMATION
  Report Type: Spontaneous
  Country: MD (occurrence: MD)
  Receive Date: 20181115
  Receipt Date: 20190204
  Transmission Date: 20190417
  Serious: Yes (Death, Life-Threatening)
  Sender: FDA-Public Use
  Company Number: MD-GEHC-2018CSU004392

PATIENT

DRUGS (3)
  1. INSULINUM HUMANUM [Concomitant]
     Dosage: UNK
     Dates: start: 2013
  2. OMNIPAQUE [Suspect]
     Active Substance: IOHEXOL
     Indication: PULMONARY EMBOLISM
     Dosage: 75 ML, SINGLE
     Route: 042
     Dates: start: 20181022, end: 20181022
  3. METFORMIN [Concomitant]
     Active Substance: METFORMIN HYDROCHLORIDE
     Indication: TYPE 1 DIABETES MELLITUS
     Dosage: 1000 MG, BID
     Dates: start: 2007

REACTIONS (2)
  - Cardiac arrest [Fatal]
  - Cardiac failure [Fatal]

NARRATIVE: CASE EVENT DATE: 20181022
